FAERS Safety Report 5662313-5 (Version None)
Quarter: 2008Q1

REPORT INFORMATION
  Report Type: 
  Country: None (occurrence: None)
  Receive Date: 20080312
  Receipt Date: 20080301
  Transmission Date: 20080703
  Serious: Yes (Hospitalization, Other)
  Sender: FDA-Public Use
  Company Number: US-PFIZER INC-2008020444

PATIENT
  Sex: Female
  Weight: 86.363 kg

DRUGS (7)
  1. CHANTIX [Suspect]
     Indication: EX-SMOKER
  2. FUROSEMIDE [Concomitant]
  3. OXYBUTYNIN CHLORIDE [Concomitant]
  4. ALLEGRA [Concomitant]
  5. ALLERGY MEDICATION [Concomitant]
  6. LEXAPRO [Concomitant]
  7. VITAMIN CAP [Concomitant]

REACTIONS (3)
  - ABNORMAL DREAMS [None]
  - GOITRE [None]
  - MOOD SWINGS [None]
